FAERS Safety Report 11894921 (Version 1)
Quarter: 2016Q1

REPORT INFORMATION
  Report Type: Spontaneous
  Country: GB (occurrence: GB)
  Receive Date: 20160107
  Receipt Date: 20160107
  Transmission Date: 20160526
  Serious: Yes (Hospitalization)
  Sender: FDA-Public Use
  Company Number: GB-TEVA-623506ISR

PATIENT
  Sex: Female

DRUGS (1)
  1. ORAMORPH [Suspect]
     Active Substance: MORPHINE SULFATE

REACTIONS (4)
  - Feeling guilty [Recovering/Resolving]
  - Anxiety [Recovering/Resolving]
  - Depressed mood [Recovering/Resolving]
  - Intentional overdose [Unknown]
